FAERS Safety Report 15011034 (Version 2)
Quarter: 2018Q2

REPORT INFORMATION
  Report Type: Spontaneous
  Country: US (occurrence: US)
  Receive Date: 20180614
  Receipt Date: 20180618
  Transmission Date: 20180711
  Serious: Yes (Death, Other)
  Sender: FDA-Public Use
  Company Number: US-LEXICON PHARMACEUTICALS, INC-18-1606-00693

PATIENT
  Sex: Male

DRUGS (21)
  1. CALCIUM CITRATE [Concomitant]
     Active Substance: CALCIUM CITRATE
  2. XIFAXAN [Concomitant]
     Active Substance: RIFAXIMIN
  3. SANDOSTATIN LAR DEPOT [Concomitant]
     Active Substance: OCTREOTIDE ACETATE
  4. CIALIS [Concomitant]
     Active Substance: TADALAFIL
  5. NEOMYCIN SULFATE. [Concomitant]
     Active Substance: NEOMYCIN SULFATE
  6. PROCHLORPERAZINE. [Concomitant]
     Active Substance: PROCHLORPERAZINE
  7. RANITIDINE. [Concomitant]
     Active Substance: RANITIDINE
  8. TELOTRISTAT ETHYL [Suspect]
     Active Substance: TELOTRISTAT ETHYL
     Indication: NEUROENDOCRINE TUMOUR
     Route: 048
     Dates: start: 20170621, end: 201806
  9. CONSTULOSE [Concomitant]
     Active Substance: LACTULOSE
  10. NAPROXEN. [Concomitant]
     Active Substance: NAPROXEN
  11. KADIAN [Concomitant]
     Active Substance: MORPHINE SULFATE
  12. AMLODIPINE [Concomitant]
     Active Substance: AMLODIPINE BESYLATE
  13. OXYCODONE [Concomitant]
     Active Substance: OXYCODONE
  14. ZOFRAN [Concomitant]
     Active Substance: ONDANSETRON HYDROCHLORIDE
  15. AFINITOR [Concomitant]
     Active Substance: EVEROLIMUS
  16. DEXAMETHASON [Concomitant]
     Active Substance: DEXAMETHASONE
  17. TELOTRISTAT ETHYL [Suspect]
     Active Substance: TELOTRISTAT ETHYL
     Indication: CARCINOID SYNDROME
  18. VITAMIN B12 [Concomitant]
     Active Substance: CYANOCOBALAMIN
  19. CLARITIN [Concomitant]
     Active Substance: LORATADINE
  20. ZYRTEC [Concomitant]
     Active Substance: CETIRIZINE HYDROCHLORIDE
  21. LASIX [Concomitant]
     Active Substance: FUROSEMIDE

REACTIONS (1)
  - Neuroendocrine tumour [Fatal]
